FAERS Safety Report 8973616 (Version 2)
Quarter: 2013Q1

REPORT INFORMATION
  Report Type: Spontaneous
  Country: US (occurrence: US)
  Receive Date: 20121218
  Receipt Date: 20130108
  Transmission Date: 20140127
  Serious: Yes (Other)
  Sender: FDA-Public Use
  Company Number: CHPA2012US024920

PATIENT
  Age: 52 Year
  Sex: Female

DRUGS (2)
  1. EXCEDRIN MIGRAINE [Suspect]
     Indication: MIGRAINE
     Dosage: UNK, AS NEEDED
  2. EXCEDRIN PM [Suspect]
     Dosage: UNK, AS NEEDED
     Route: 048

REACTIONS (4)
  - Head injury [Not Recovered/Not Resolved]
  - Amnesia [Not Recovered/Not Resolved]
  - Skull fracture [Unknown]
  - Accident [Recovered/Resolved]
